FAERS Safety Report 19816784 (Version 1)
Quarter: 2021Q3

REPORT INFORMATION
  Report Type: Spontaneous
  Country: NL (occurrence: NL)
  Receive Date: 20210909
  Receipt Date: 20210909
  Transmission Date: 20211014
  Serious: Yes (Death)
  Sender: FDA-Public Use
  Company Number: NL-ROCHE-2906538

PATIENT
  Age: 74 Year
  Sex: Female
  Weight: 67 kg

DRUGS (9)
  1. LOPERAMIDE [Concomitant]
     Active Substance: LOPERAMIDE
     Dates: start: 20200921
  2. RINGERLACTAAT [Concomitant]
  3. MIRTAZAPINE. [Concomitant]
     Active Substance: MIRTAZAPINE
     Dates: start: 20200518
  4. CALCIUMCARBONAT [Concomitant]
  5. PERTUZUMAB. [Suspect]
     Active Substance: PERTUZUMAB
     Indication: PRODUCT USED FOR UNKNOWN INDICATION
     Dosage: INJECTION FLUID DOSE EVERY 3 WEEKS 420 MG MAINTENANCE DOSE
     Route: 065
     Dates: start: 202005, end: 20210414
  6. TRASTUZUMAB. [Suspect]
     Active Substance: TRASTUZUMAB
     Indication: PRODUCT USED FOR UNKNOWN INDICATION
     Dosage: INJECTION FLUID DOSE EVERY 3 WEEKS 420 MG MAINTENANCE DOSE
     Route: 065
     Dates: start: 202005, end: 20210414
  7. CLEMASTINE [Concomitant]
     Active Substance: CLEMASTINE
     Dates: start: 202011
  8. PFIZER?BIONTECH COVID?19 VACCINE [Suspect]
     Active Substance: TOZINAMERAN
     Indication: PRODUCT USED FOR UNKNOWN INDICATION
     Route: 065
     Dates: start: 20210419
  9. NEXIUM [Concomitant]
     Active Substance: ESOMEPRAZOLE MAGNESIUM
     Dates: start: 20200921

REACTIONS (1)
  - Death [Fatal]

NARRATIVE: CASE EVENT DATE: 20210420
